FAERS Safety Report 17334617 (Version 1)
Quarter: 2020Q1

REPORT INFORMATION
  Report Type: Spontaneous
  Country: US (occurrence: US)
  Receive Date: 20200128
  Receipt Date: 20200128
  Transmission Date: 20200409
  Serious: Yes (Hospitalization, Other)
  Sender: FDA-Public Use
  Company Number: US-BTCP PHARMA-BTC202001-000011

PATIENT
  Sex: Female

DRUGS (1)
  1. SUBSYS [Suspect]
     Active Substance: FENTANYL
     Indication: PRODUCT USED FOR UNKNOWN INDICATION
     Route: 060

REACTIONS (9)
  - Premature menopause [Unknown]
  - Pustule [Unknown]
  - Blister [Unknown]
  - Generalised tonic-clonic seizure [Unknown]
  - Loss of consciousness [Unknown]
  - Polyp [Unknown]
  - Malaise [Unknown]
  - Hospitalisation [Unknown]
  - Adhesion [Unknown]
